FAERS Safety Report 8204923-7 (Version None)
Quarter: 2012Q1

REPORT INFORMATION
  Report Type: 
  Country: None (occurrence: None)
  Receive Date: 20120313
  Receipt Date: 20120301
  Transmission Date: 20120608
  Serious: Yes (Life-Threatening, Hospitalization)
  Sender: FDA-Public Use
  Company Number: ES-FRI-1000028966

PATIENT
  Age: 66 Year
  Sex: Male

DRUGS (6)
  1. VENLAFAXINE HCL [Concomitant]
     Dosage: 75 MG
     Route: 048
     Dates: start: 20090701, end: 20090721
  2. ESCITALOPRAM [Suspect]
     Dosage: 15 MG
     Route: 048
     Dates: start: 20070901, end: 20090706
  3. ARTEDIL [Concomitant]
     Indication: HYPERTENSION
     Dosage: 40 MG
     Route: 048
  4. CARDURA [Concomitant]
     Dosage: 8 MG
     Route: 048
     Dates: start: 20090701
  5. FUROSEMIDE [Suspect]
     Dosage: 80 MG
     Route: 048
     Dates: start: 20080501
  6. OMEPRAZOLE [Concomitant]
     Indication: PROPHYLAXIS
     Dosage: 20 MG
     Route: 048
     Dates: start: 20090201

REACTIONS (2)
  - DRUG INTERACTION [None]
  - HYPONATRAEMIA [None]
